FAERS Safety Report 23775124 (Version 1)
Quarter: 2024Q2

REPORT INFORMATION
  Report Type: Spontaneous
  Country: US (occurrence: US)
  Receive Date: 20240423
  Receipt Date: 20240423
  Transmission Date: 20240715
  Serious: No
  Sender: FDA-Public Use
  Company Number: US-SA-SAC20240418000042

PATIENT
  Age: 26 Year
  Sex: Female

DRUGS (3)
  1. DUPIXENT [Suspect]
     Active Substance: DUPILUMAB
     Indication: Asthma
     Dosage: 300 MG, QOW
     Route: 058
  2. SYMBICORT [Suspect]
     Active Substance: BUDESONIDE\FORMOTEROL FUMARATE DIHYDRATE
     Dosage: UNK
  3. BOTOX [Suspect]
     Active Substance: ONABOTULINUMTOXINA
     Dosage: UNK

REACTIONS (10)
  - Nasal dryness [Unknown]
  - Epistaxis [Unknown]
  - Dyspnoea [Unknown]
  - Depression [Unknown]
  - Exfoliative rash [Unknown]
  - Brain fog [Unknown]
  - Chest discomfort [Unknown]
  - Dry eye [Unknown]
  - Injection site pain [Unknown]
  - Therapeutic response unexpected [Unknown]
